FAERS Safety Report 5843419-4 (Version None)
Quarter: 2008Q3

REPORT INFORMATION
  Report Type: 
  Country: None (occurrence: None)
  Receive Date: 20080813
  Receipt Date: 20080806
  Transmission Date: 20090109
  Serious: Yes (Hospitalization)
  Sender: FDA-Public Use
  Company Number: B0532316A

PATIENT
  Age: 54 Year
  Sex: Male

DRUGS (13)
  1. LAMOTRIGINE [Suspect]
     Indication: MENTAL DISORDER
     Dosage: 100MG TWICE PER DAY
     Route: 065
     Dates: start: 20060801, end: 20080326
  2. SEROQUEL [Suspect]
     Dates: start: 20050221, end: 20071104
  3. APOZEPAM [Suspect]
     Indication: SEDATION
     Dates: start: 20041001, end: 20050301
  4. TRUXAL [Suspect]
     Indication: SEDATION
     Dates: start: 20050504, end: 20050727
  5. RIVOTRIL [Suspect]
     Indication: SEDATION
     Dosage: .5MG SEE DOSAGE TEXT
     Dates: start: 20050808, end: 20080520
  6. ALOPAM [Suspect]
     Indication: SEDATION
     Dosage: 15MG SEE DOSAGE TEXT
     Dates: start: 20050905, end: 20051008
  7. PROPRANOLOL [Concomitant]
     Indication: HYPERTENSION
     Dates: start: 19911015
  8. LANSOPRAZOLE [Concomitant]
     Dates: start: 19970914
  9. TERAZOSIN HCL [Concomitant]
     Indication: HYPERTENSION
     Dates: start: 19940920
  10. RHINOCORT [Concomitant]
     Dosage: 1SPR TWICE PER DAY
     Route: 045
     Dates: start: 19950820
  11. METFORMIN HCL [Concomitant]
     Dates: start: 20051120
  12. RAMIPRIL [Concomitant]
     Indication: HYPERTENSION
     Dates: start: 20060305
  13. SIMVASTATIN [Concomitant]
     Dates: start: 20060305

REACTIONS (8)
  - AGGRESSION [None]
  - ANXIETY [None]
  - DRUG INEFFECTIVE [None]
  - DRY MOUTH [None]
  - FATIGUE [None]
  - INCREASED APPETITE [None]
  - OEDEMA PERIPHERAL [None]
  - PERSONALITY CHANGE [None]
